FAERS Safety Report 18311452 (Version 1)
Quarter: 2020Q3

REPORT INFORMATION
  Report Type: Spontaneous
  Country: US (occurrence: US)
  Receive Date: 20200924
  Receipt Date: 20200924
  Transmission Date: 20201103
  Serious: No
  Sender: FDA-Public Use
  Company Number: None

PATIENT
  Age: 72 Year
  Sex: Male

DRUGS (1)
  1. WARFARIN (WARFARIN NA (EXELAN) 5MG TAB) [Suspect]
     Active Substance: WARFARIN SODIUM

REACTIONS (10)
  - Alanine aminotransferase increased [None]
  - Asthenia [None]
  - Coagulopathy [None]
  - Liver function test increased [None]
  - Aspartate aminotransferase increased [None]
  - Pneumonia [None]
  - Blood alkaline phosphatase increased [None]
  - Therapy interrupted [None]
  - Anticoagulation drug level above therapeutic [None]
  - Anaemia [None]

NARRATIVE: CASE EVENT DATE: 20181206
